FAERS Safety Report 18945929 (Version 17)
Quarter: 2022Q2

REPORT INFORMATION
  Report Type: Report from Study
  Country: US (occurrence: US)
  Receive Date: 20210226
  Receipt Date: 20220614
  Transmission Date: 20220720
  Serious: Yes (Hospitalization, Other)
  Sender: FDA-Public Use
  Company Number: US-TAKEDA-2021TUS010949

PATIENT
  Sex: Female
  Weight: 70.295 kg

DRUGS (39)
  1. HUMAN IMMUNOGLOBULIN G\HYALURONIDASE RECOMBINANT HUMAN [Suspect]
     Active Substance: HUMAN IMMUNOGLOBULIN G\HYALURONIDASE RECOMBINANT HUMAN
     Indication: Immunodeficiency common variable
     Dosage: 55 GRAM, Q4WEEKS
     Route: 058
     Dates: start: 20210223
  2. HUMAN IMMUNOGLOBULIN G\HYALURONIDASE RECOMBINANT HUMAN [Suspect]
     Active Substance: HUMAN IMMUNOGLOBULIN G\HYALURONIDASE RECOMBINANT HUMAN
     Dosage: 55 GRAM, Q4WEEKS
     Route: 058
     Dates: start: 20210223
  3. HUMAN IMMUNOGLOBULIN G\HYALURONIDASE RECOMBINANT HUMAN [Suspect]
     Active Substance: HUMAN IMMUNOGLOBULIN G\HYALURONIDASE RECOMBINANT HUMAN
     Dosage: 55 GRAM, Q4WEEKS
     Route: 058
     Dates: start: 20210223
  4. HUMAN IMMUNOGLOBULIN G\HYALURONIDASE RECOMBINANT HUMAN [Suspect]
     Active Substance: HUMAN IMMUNOGLOBULIN G\HYALURONIDASE RECOMBINANT HUMAN
     Dosage: 55 GRAM, Q4WEEKS
     Route: 058
     Dates: start: 20210223
  5. HUMAN IMMUNOGLOBULIN G\HYALURONIDASE RECOMBINANT HUMAN [Suspect]
     Active Substance: HUMAN IMMUNOGLOBULIN G\HYALURONIDASE RECOMBINANT HUMAN
     Dosage: 55 GRAM, Q4WEEKS
     Route: 058
     Dates: start: 20210223
  6. HUMAN IMMUNOGLOBULIN G\HYALURONIDASE RECOMBINANT HUMAN [Suspect]
     Active Substance: HUMAN IMMUNOGLOBULIN G\HYALURONIDASE RECOMBINANT HUMAN
     Dosage: 40 GRAM, Q4WEEKS
     Route: 058
     Dates: start: 20210223
  7. HUMAN IMMUNOGLOBULIN G\HYALURONIDASE RECOMBINANT HUMAN [Suspect]
     Active Substance: HUMAN IMMUNOGLOBULIN G\HYALURONIDASE RECOMBINANT HUMAN
     Dosage: 55 GRAM, Q4WEEKS
     Route: 058
     Dates: start: 20210223
  8. ACETAMINOPHEN [Concomitant]
     Active Substance: ACETAMINOPHEN
     Indication: Immunodeficiency common variable
     Dosage: UNK
     Route: 065
  9. DIPHENHYDRAMINE [Concomitant]
     Active Substance: DIPHENHYDRAMINE
     Indication: Immunodeficiency common variable
     Dosage: UNK
     Route: 065
  10. LIDOCAINE [Concomitant]
     Active Substance: LIDOCAINE
     Indication: Immunodeficiency common variable
     Dosage: UNK
     Route: 065
  11. SODIUM CHLORIDE [Concomitant]
     Active Substance: SODIUM CHLORIDE
     Indication: Immunodeficiency common variable
     Dosage: UNK
     Route: 065
  12. EPINEPHRINE [Concomitant]
     Active Substance: EPINEPHRINE
     Indication: Immunodeficiency common variable
     Dosage: UNK
     Route: 065
  13. HUMALOG [Concomitant]
     Active Substance: INSULIN LISPRO
     Indication: Immunodeficiency common variable
     Dosage: UNK
     Route: 065
  14. ELIQUIS [Concomitant]
     Active Substance: APIXABAN
     Indication: Immunodeficiency common variable
     Dosage: UNK
     Route: 065
  15. LANTUS [Concomitant]
     Active Substance: INSULIN GLARGINE
     Indication: Immunodeficiency common variable
     Dosage: UNK
     Route: 065
  16. DILTIAZEM [Concomitant]
     Active Substance: DILTIAZEM
     Indication: Immunodeficiency common variable
     Dosage: UNK
     Route: 065
  17. ANASTROZOLE [Concomitant]
     Active Substance: ANASTROZOLE
     Indication: Immunodeficiency common variable
     Dosage: UNK
     Route: 065
  18. HYDROCHLOROTHIAZIDE [Concomitant]
     Active Substance: HYDROCHLOROTHIAZIDE
     Indication: Immunodeficiency common variable
     Dosage: UNK
     Route: 065
  19. PANTOPRAZOLE [Concomitant]
     Active Substance: PANTOPRAZOLE
     Indication: Immunodeficiency common variable
     Dosage: UNK
     Route: 065
  20. POTASSIUM [Concomitant]
     Active Substance: POTASSIUM
     Indication: Immunodeficiency common variable
     Dosage: UNK
     Route: 065
  21. MONTELUKAST [Concomitant]
     Active Substance: MONTELUKAST SODIUM
     Indication: Immunodeficiency common variable
     Dosage: UNK
     Route: 065
  22. VITAMIN D3 [Concomitant]
     Active Substance: CHOLECALCIFEROL
     Indication: Immunodeficiency common variable
     Dosage: UNK
     Route: 065
  23. METOPROLOL TARTRATE [Concomitant]
     Active Substance: METOPROLOL TARTRATE
     Indication: Immunodeficiency common variable
     Dosage: UNK
     Route: 065
  24. HYDRALAZINE [Concomitant]
     Active Substance: HYDRALAZINE HYDROCHLORIDE
     Indication: Immunodeficiency common variable
     Dosage: UNK
     Route: 065
  25. QVAR REDIHALER [Concomitant]
     Active Substance: BECLOMETHASONE DIPROPIONATE
     Indication: Immunodeficiency common variable
     Dosage: UNK
     Route: 065
  26. XOPENEX [Concomitant]
     Active Substance: LEVALBUTEROL HYDROCHLORIDE
     Indication: Immunodeficiency common variable
     Dosage: UNK
     Route: 065
  27. FUROSEMIDE [Concomitant]
     Active Substance: FUROSEMIDE
     Indication: Immunodeficiency common variable
     Route: 065
  28. ALPRAZOLAM [Concomitant]
     Active Substance: ALPRAZOLAM
     Indication: Immunodeficiency common variable
     Route: 065
  29. ATORVASTATIN CALCIUM [Concomitant]
     Active Substance: ATORVASTATIN CALCIUM
     Indication: Immunodeficiency common variable
     Route: 065
  30. ASPIRIN [Concomitant]
     Active Substance: ASPIRIN
     Indication: Immunodeficiency common variable
     Route: 065
  31. POTASSIUM CHLORIDE [Concomitant]
     Active Substance: POTASSIUM CHLORIDE
     Indication: Immunodeficiency common variable
     Route: 065
  32. TYLENOL EXTRA STRENGTH [Concomitant]
     Active Substance: ACETAMINOPHEN
     Indication: Immunodeficiency common variable
     Route: 065
  33. SODIUM CHLORIDE [Concomitant]
     Active Substance: SODIUM CHLORIDE
     Indication: Immunodeficiency common variable
     Route: 065
  34. LEVALBUTEROL TARTRATE [Concomitant]
     Active Substance: LEVALBUTEROL TARTRATE
     Indication: Immunodeficiency common variable
     Route: 065
  35. HYDRALAZINE HCL [Concomitant]
     Active Substance: HYDRALAZINE HYDROCHLORIDE
     Indication: Immunodeficiency common variable
     Route: 065
  36. METOPROLOL TARTRATE [Concomitant]
     Active Substance: METOPROLOL TARTRATE
     Indication: Immunodeficiency common variable
     Route: 065
  37. PANTOPRAZOLE SODIUM [Concomitant]
     Active Substance: PANTOPRAZOLE SODIUM
     Indication: Immunodeficiency common variable
     Route: 065
  38. ATORVASTATIN [Concomitant]
     Active Substance: ATORVASTATIN
  39. LEVALBUTEROL [Concomitant]
     Active Substance: LEVALBUTEROL

REACTIONS (23)
  - Cardiac failure congestive [Unknown]
  - Atrial fibrillation [Unknown]
  - Pulmonary oedema [Unknown]
  - Nephrolithiasis [Unknown]
  - Dupuytren^s contracture [Unknown]
  - Haemorrhage [Unknown]
  - Renal mass [Unknown]
  - Renal cyst [Unknown]
  - Cystitis [Unknown]
  - Contusion [Unknown]
  - Petechiae [Unknown]
  - Poor venous access [Unknown]
  - Bacterial infection [Unknown]
  - Weight decreased [Unknown]
  - Fluid retention [Unknown]
  - Pleural effusion [Unknown]
  - Infusion site haemorrhage [Not Recovered/Not Resolved]
  - Erythema [Unknown]
  - Pruritus [Unknown]
  - Infusion site extravasation [Not Recovered/Not Resolved]
  - Pain in extremity [Unknown]
  - Infusion site pain [Unknown]
  - Dyspnoea [Unknown]
